FAERS Safety Report 11421695 (Version 2)
Quarter: 2015Q4

REPORT INFORMATION
  Report Type: Spontaneous
  Country: US (occurrence: US)
  Receive Date: 20150827
  Receipt Date: 20151021
  Transmission Date: 20160304
  Serious: No
  Sender: FDA-Public Use
  Company Number: US-ASTRAZENECA-2015SE78674

PATIENT
  Sex: Female
  Weight: 72.6 kg

DRUGS (5)
  1. SYMBICORT [Suspect]
     Active Substance: BUDESONIDE\FORMOTEROL FUMARATE DIHYDRATE
     Indication: ASTHMA
     Dosage: 80/4.5, 2 PUFFS TWO TIMES A DAY
     Route: 055
     Dates: start: 20150723, end: 20150807
  2. SYMBICORT [Suspect]
     Active Substance: BUDESONIDE\FORMOTEROL FUMARATE DIHYDRATE
     Indication: WHEEZING
     Dosage: 80/4.5, 2 PUFFS TWO TIMES A DAY
     Route: 055
     Dates: start: 20150723, end: 20150807
  3. SYMBICORT [Suspect]
     Active Substance: BUDESONIDE\FORMOTEROL FUMARATE DIHYDRATE
     Indication: INFLAMMATION
     Dosage: 80/4.5, 2 PUFFS TWO TIMES A DAY
     Route: 055
     Dates: start: 20150723, end: 20150807
  4. SYMBICORT [Suspect]
     Active Substance: BUDESONIDE\FORMOTEROL FUMARATE DIHYDRATE
     Indication: DYSPNOEA
     Dosage: 80/4.5, 2 PUFFS TWO TIMES A DAY
     Route: 055
     Dates: start: 20150723, end: 20150807
  5. SYMBICORT [Suspect]
     Active Substance: BUDESONIDE\FORMOTEROL FUMARATE DIHYDRATE
     Indication: CHRONIC OBSTRUCTIVE PULMONARY DISEASE
     Dosage: 80/4.5, 2 PUFFS TWO TIMES A DAY
     Route: 055
     Dates: start: 20150723, end: 20150807

REACTIONS (5)
  - Sleep disorder due to general medical condition, insomnia type [Recovered/Resolved]
  - Pain [Recovered/Resolved]
  - Product use issue [Unknown]
  - Off label use [Unknown]
  - Muscle spasms [Recovered/Resolved]
